FAERS Safety Report 21992229 (Version 1)
Quarter: 2023Q1

REPORT INFORMATION
  Report Type: Spontaneous
  Country: CA (occurrence: CA)
  Receive Date: 20230214
  Receipt Date: 20230214
  Transmission Date: 20230418
  Serious: Yes (Hospitalization)
  Sender: FDA-Public Use
  Company Number: None

PATIENT
  Age: 63 Year
  Sex: Female
  Weight: 91 kg

DRUGS (12)
  1. CARBOPLATIN [Suspect]
     Active Substance: CARBOPLATIN
     Indication: Transitional cell carcinoma
     Dosage: SOLUTION INTRAVENOUS, FREQUENCY: CYCLICAL
     Route: 042
  2. GEMCITABINE [Suspect]
     Active Substance: GEMCITABINE
     Indication: Transitional cell carcinoma
     Dosage: SOLUTION INTRAVENOUS, FREQUENCY: CYCLICAL
     Route: 042
  3. ACETAMINOPHEN [Concomitant]
     Active Substance: ACETAMINOPHEN
  4. FLUTICASONE FUROATE [Concomitant]
     Active Substance: FLUTICASONE FUROATE
     Dosage: SPRAY, METERED DOSE
  5. FERROUS SULFATE [Concomitant]
     Active Substance: FERROUS SULFATE
  6. HYDROMORPHONE [Concomitant]
     Active Substance: HYDROMORPHONE
  7. POLYETHYLENE GLYCOL [Concomitant]
     Active Substance: POLYETHYLENE GLYCOL
     Dosage: POWDER FOR SOLUTION ORAL
  8. NICOTINE [Concomitant]
     Active Substance: NICOTINE
  9. PROCHLORPERAZINE [Concomitant]
     Active Substance: PROCHLORPERAZINE
  10. QVAR [Concomitant]
     Active Substance: BECLOMETHASONE DIPROPIONATE
     Dosage: INHALATION
  11. TOPICORT [Concomitant]
     Active Substance: DESOXIMETASONE
     Route: 061
  12. VENTOLIN [Concomitant]
     Active Substance: ALBUTEROL SULFATE
     Route: 055

REACTIONS (5)
  - Febrile neutropenia [Unknown]
  - Haematuria [Unknown]
  - Pubic pain [Unknown]
  - Transfusion [Unknown]
  - Urinary retention [Unknown]
